FAERS Safety Report 5144089-3 (Version None)
Quarter: 2006Q4

REPORT INFORMATION
  Report Type: 
  Country: None (occurrence: None)
  Receive Date: 20061106
  Receipt Date: 20061030
  Transmission Date: 20070319
  Serious: Yes (Hospitalization)
  Sender: FDA-Public Use
  Company Number: 06.043-PRES-FRA

PATIENT
  Age: 74 Year
  Sex: Female

DRUGS (10)
  1. TRIAMTERENE AND HYDROCHLOROTHIAZIDE [Suspect]
     Indication: DRUG USE FOR UNKNOWN INDICATION
     Dosage: 1CAP PER DAY
     Route: 048
     Dates: end: 20060425
  2. FURADANTIN [Concomitant]
     Indication: PROPHYLAXIS
     Dosage: 50MG TWICE PER DAY
     Route: 048
     Dates: start: 20060301, end: 20060425
  3. ASPIRIN [Concomitant]
     Dosage: 75MG PER DAY
     Route: 048
     Dates: start: 20040101
  4. HYPERIUM [Concomitant]
     Dosage: 1MG PER DAY
     Route: 048
  5. TAREG [Concomitant]
     Dosage: 80MG PER DAY
     Route: 048
  6. TANAKAN [Concomitant]
     Route: 048
  7. DAFLON [Concomitant]
     Route: 048
  8. BETACAROTENE [Concomitant]
     Route: 048
  9. TRASICOR [Concomitant]
     Route: 048
     Dates: end: 20060410
  10. VASTAREL [Concomitant]

REACTIONS (3)
  - LICHENOID KERATOSIS [None]
  - PRURITUS [None]
  - RASH PAPULAR [None]
